FAERS Safety Report 8019468-7 (Version None)
Quarter: 2012Q1

REPORT INFORMATION
  Report Type: 
  Country: None (occurrence: None)
  Receive Date: 20120103
  Receipt Date: 20111230
  Transmission Date: 20120608
  Serious: Yes (Hospitalization)
  Sender: FDA-Public Use
  Company Number: PHHY2011US40224

PATIENT
  Sex: Female

DRUGS (1)
  1. GILENYA [Suspect]
     Indication: RELAPSING-REMITTING MULTIPLE SCLEROSIS
     Dosage: 0.5 MG, QD
     Route: 048
     Dates: start: 20110425, end: 20111001

REACTIONS (9)
  - SPEECH DISORDER [None]
  - CHEST PAIN [None]
  - PAIN [None]
  - DIARRHOEA [None]
  - MUSCULOSKELETAL PAIN [None]
  - PALPITATIONS [None]
  - HYPOAESTHESIA ORAL [None]
  - FATIGUE [None]
  - PHARYNGEAL DISORDER [None]
